FAERS Safety Report 5115445-4 (Version None)
Quarter: 2006Q3

REPORT INFORMATION
  Report Type: 
  Country: None (occurrence: None)
  Receive Date: 20060920
  Receipt Date: 20060911
  Transmission Date: 20061208
  Serious: Yes (Hospitalization)
  Sender: FDA-Public Use
  Company Number: 2006-147869-NL

PATIENT
  Age: 69 Year
  Sex: Male

DRUGS (5)
  1. MIRTAZAPINE [Suspect]
     Dosage: 60 MG
     Dates: start: 20030401
  2. OLANZAPINE [Suspect]
     Dosage: 5 MG
     Dates: start: 20030401
  3. ESCITALOPRAM [Suspect]
     Dosage: 5 MG
     Dates: start: 20040219, end: 20040224
  4. TAMSULOSIN HYDROCHLORIDE [Concomitant]
  5. LEVOTHYROXINE SODIUM [Concomitant]

REACTIONS (2)
  - DEEP VEIN THROMBOSIS [None]
  - DRUG INTERACTION [None]
